FAERS Safety Report 4318110-6 (Version None)
Quarter: 2004Q1

REPORT INFORMATION
  Report Type: 
  Country: None (occurrence: None)
  Receive Date: 20040315
  Receipt Date: 20040302
  Transmission Date: 20041129
  Serious: Yes (Other)
  Sender: FDA-Public Use
  Company Number: US-JNJFOC-20040205399

PATIENT
  Age: 80 Year
  Sex: Female

DRUGS (9)
  1. DITROPAN XL [Suspect]
     Indication: HYPERTONIC BLADDER
     Dosage: 10 MG, 1 IN 1 DAY, ORAL
     Route: 048
     Dates: start: 20031201
  2. DETROL [Suspect]
     Indication: DRUG USE FOR UNKNOWN INDICATION
     Dates: start: 20020201
  3. ACCUPRIL (QUINAPRIL HYDROHLORIDE) [Concomitant]
  4. LASIX [Concomitant]
  5. K-DUR 10 [Concomitant]
  6. TRIAQZAC (BENZOYL PEROXIDE) [Concomitant]
  7. ADVAIR (SERETIDE MITE) [Concomitant]
  8. REMINYL [Concomitant]
  9. ZOCOR [Concomitant]

REACTIONS (1)
  - CEREBROVASCULAR ACCIDENT [None]
